FAERS Safety Report 16291404 (Version 1)
Quarter: 2019Q2

REPORT INFORMATION
  Report Type: Spontaneous
  Country: CA (occurrence: CA)
  Receive Date: 20190509
  Receipt Date: 20190509
  Transmission Date: 20190711
  Serious: Yes (Other)
  Sender: FDA-Public Use
  Company Number: CA-ELI_LILLY_AND_COMPANY-CA201905001841

PATIENT
  Age: 16 Year
  Sex: Female

DRUGS (2)
  1. CYMBALTA [Suspect]
     Active Substance: DULOXETINE HYDROCHLORIDE
     Dosage: 30 MG, UNKNOWN
     Route: 048
  2. CYMBALTA [Suspect]
     Active Substance: DULOXETINE HYDROCHLORIDE
     Indication: VULVOVAGINAL PAIN
     Dosage: 60 MG, UNKNOWN
     Route: 048
     Dates: start: 20190405

REACTIONS (4)
  - Depression [Recovered/Resolved]
  - Off label use [Unknown]
  - Suicidal ideation [Recovered/Resolved]
  - Vulvovaginal pain [Unknown]
